FAERS Safety Report 24976711 (Version 2)
Quarter: 2025Q2

REPORT INFORMATION
  Report Type: Other
  Country: US (occurrence: US)
  Receive Date: 20250217
  Receipt Date: 20250411
  Transmission Date: 20250717
  Serious: Yes (Hospitalization)
  Sender: TRAVERE THERAPEUTICS
  Company Number: US-TRAVERE-2025TVT00174

PATIENT
  Sex: Male

DRUGS (2)
  1. FILSPARI [Suspect]
     Active Substance: SPARSENTAN
     Indication: IgA nephropathy
     Route: 048
     Dates: start: 20230616
  2. FILSPARI [Suspect]
     Active Substance: SPARSENTAN
     Indication: Haematuria

REACTIONS (3)
  - Urinary tract infection [Unknown]
  - Sepsis [Unknown]
  - Renal impairment [Unknown]
